FAERS Safety Report 13706087 (Version 3)
Quarter: 2017Q3

REPORT INFORMATION
  Report Type: Spontaneous
  Country: JP (occurrence: JP)
  Receive Date: 20170630
  Receipt Date: 20170808
  Transmission Date: 20171127
  Serious: Yes (Life-Threatening, Hospitalization, Other)
  Sender: FDA-Public Use
  Company Number: JP-PFIZER INC-2017245438

PATIENT
  Age: 89 Year
  Sex: Female
  Weight: 42 kg

DRUGS (9)
  1. MAGMITT [Concomitant]
     Active Substance: MAGNESIUM OXIDE
     Dosage: UNK UNK, 2X/DAY
     Route: 048
     Dates: start: 20130809
  2. MOSAPRIDE CITRATE [Concomitant]
     Active Substance: MOSAPRIDE CITRATE
     Dosage: UNK UNK, 3X/DAY
     Route: 048
     Dates: start: 20140409
  3. ELIQUIS [Suspect]
     Active Substance: APIXABAN
     Indication: CEREBROVASCULAR ACCIDENT PROPHYLAXIS
     Dosage: 2.5 MG, 2X/DAY
     Route: 048
     Dates: start: 20150207, end: 20170519
  4. ALDACTONE A 25MG [Suspect]
     Active Substance: SPIRONOLACTONE
     Indication: CARDIAC FAILURE
     Dosage: 25 MG, 1X/DAY
     Dates: start: 20170407
  5. LASIX [Suspect]
     Active Substance: FUROSEMIDE
     Indication: CARDIAC FAILURE
     Dosage: 40 MG, 1X/DAY
     Dates: start: 20170407
  6. ARTIST [Suspect]
     Active Substance: CARVEDILOL
     Dosage: 5 MG, 1X/DAY
     Route: 048
     Dates: start: 20150207
  7. HALFDIGOXIN [Concomitant]
     Active Substance: DIGOXIN
     Dosage: UNK UNK, 1X/DAY
     Route: 048
     Dates: start: 20150207
  8. MYSLEE [Concomitant]
     Active Substance: ZOLPIDEM TARTRATE
     Dosage: 10 MG, UNK
     Route: 048
     Dates: start: 20140908
  9. ARTIST [Suspect]
     Active Substance: CARVEDILOL
     Dosage: 5 MG, 1X/DAY
     Route: 048
     Dates: start: 20170407

REACTIONS (5)
  - Rectal cancer [Recovered/Resolved with Sequelae]
  - Gastrointestinal haemorrhage [Recovered/Resolved]
  - Melaena [Recovered/Resolved]
  - Sluggishness [Unknown]
  - Anaemia [Unknown]

NARRATIVE: CASE EVENT DATE: 201704
